FAERS Safety Report 6245466-X (Version None)
Quarter: 2009Q2

REPORT INFORMATION
  Report Type: 
  Country: None (occurrence: None)
  Receive Date: 20090625
  Receipt Date: 20090612
  Transmission Date: 20091009
  Serious: Yes (Hospitalization, Other)
  Sender: FDA-Public Use
  Company Number: PHHY2009JP18294

PATIENT
  Sex: Male

DRUGS (3)
  1. FAMVIR [Suspect]
     Indication: HERPES ZOSTER
     Dosage: 500 MG, TID
     Route: 048
     Dates: start: 20090415, end: 20090417
  2. BACITRACIN_FRADIOMYCIN SULFATE [Concomitant]
     Dosage: UNK
     Dates: start: 20090417, end: 20090427
  3. AZULENE [Concomitant]
     Dosage: UNK
     Dates: start: 20090417, end: 20090427

REACTIONS (5)
  - CONDITION AGGRAVATED [None]
  - DRUG INEFFECTIVE [None]
  - MUSCULAR WEAKNESS [None]
  - RHABDOMYOLYSIS [None]
  - TREMOR [None]
